FAERS Safety Report 4349007-3 (Version None)
Quarter: 2004Q2

REPORT INFORMATION
  Report Type: 
  Country: None (occurrence: None)
  Receive Date: 20040426
  Receipt Date: 20040426
  Transmission Date: 20050107
  Serious: Yes (Death)
  Sender: FDA-Public Use
  Company Number: None

PATIENT
  Sex: Male
  Weight: 73.0291 kg

DRUGS (2)
  1. ALPHA INTERFERON [Suspect]
     Indication: RENAL CELL CARCINOMA STAGE UNSPECIFIED
     Dosage: 1 MIU SQ BID
     Route: 058
     Dates: start: 20021010
  2. ALPHA INTERFERON [Suspect]
     Indication: RENAL CELL CARCINOMA STAGE UNSPECIFIED
     Dosage: 1 MIU SQ BID
     Route: 058
     Dates: start: 20021205

REACTIONS (2)
  - METASTASES TO LIVER [None]
  - METASTASES TO LUNG [None]
